FAERS Safety Report 9832053 (Version 1)
Quarter: 2014Q1

REPORT INFORMATION
  Report Type: Report from Study
  Country: US (occurrence: US)
  Receive Date: 20140121
  Receipt Date: 20140121
  Transmission Date: 20141002
  Serious: Yes (Hospitalization)
  Sender: FDA-Public Use
  Company Number: PHEH2014US001239

PATIENT
  Age: 28 Year
  Sex: Female
  Weight: 43.84 kg

DRUGS (22)
  1. TOBI [Suspect]
     Indication: CYSTIC FIBROSIS
     Dosage: UNK UKN, BID
     Route: 055
     Dates: start: 1997
  2. TOBI PODHALER [Suspect]
     Indication: CYSTIC FIBROSIS
     Dosage: 112 MG, BID
     Route: 055
     Dates: start: 2013
  3. PULMOZYME [Concomitant]
  4. MULTIVITAMIN//VITAMINS NOS [Concomitant]
  5. IRON [Concomitant]
  6. HYPERTONIC SALINE SOLUTION [Concomitant]
  7. ADVAIR [Concomitant]
  8. COMBIVENT [Concomitant]
  9. CREON [Concomitant]
  10. CAYSTON [Concomitant]
  11. CALCIUM + VITAMIN D [Concomitant]
  12. PREVACID [Concomitant]
  13. ZOLOFT [Concomitant]
  14. WELLBUTRIN [Concomitant]
  15. NOVOLOG [Concomitant]
  16. SINGULAIR [Concomitant]
  17. VITAMIN K [Concomitant]
  18. LEVOFLOXACINA [Concomitant]
  19. MIRALAX [Concomitant]
  20. LACTULOSE [Concomitant]
  21. MILK OF MAGNESIA [Concomitant]
  22. HEPARIN [Concomitant]

REACTIONS (4)
  - Pulmonary arteriopathy [Not Recovered/Not Resolved]
  - Non-cardiac chest pain [Not Recovered/Not Resolved]
  - Haemoptysis [Not Recovered/Not Resolved]
  - Cough [Not Recovered/Not Resolved]
